FAERS Safety Report 8064715-9 (Version None)
Quarter: 2012Q1

REPORT INFORMATION
  Report Type: 
  Country: None (occurrence: None)
  Receive Date: 20120123
  Receipt Date: 20120110
  Transmission Date: 20120608
  Serious: Yes (Hospitalization, Other)
  Sender: FDA-Public Use
  Company Number: US-ELI_LILLY_AND_COMPANY-US201201004692

PATIENT
  Sex: Female

DRUGS (6)
  1. FORTEO [Suspect]
     Indication: OSTEOPOROSIS
     Dosage: 20 UG, QD
     Route: 065
     Dates: start: 20111101, end: 20111222
  2. SIMVASTATIN [Concomitant]
  3. VERAPAMIL [Concomitant]
  4. IMIPRAMINE [Concomitant]
  5. PLAVIX [Concomitant]
  6. LORAZEPAM [Concomitant]

REACTIONS (4)
  - CEREBROVASCULAR ACCIDENT [None]
  - VASCULAR DEMENTIA [None]
  - PERSONALITY CHANGE [None]
  - CONVULSION [None]
